FAERS Safety Report 6657456-3 (Version None)
Quarter: 2010Q1

REPORT INFORMATION
  Report Type: 
  Country: None (occurrence: None)
  Receive Date: 20100330
  Receipt Date: 20100322
  Transmission Date: 20100710
  Serious: Yes (Hospitalization)
  Sender: FDA-Public Use
  Company Number: US-SANOFI-AVENTIS-2010SA016119

PATIENT

DRUGS (4)
  1. MULTAQ [Suspect]
     Route: 048
     Dates: start: 20100223, end: 20100226
  2. COUMADIN [Interacting]
     Route: 065
  3. LOPRESSOR [Concomitant]
  4. ZESTRIL [Concomitant]

REACTIONS (2)
  - INTERNATIONAL NORMALISED RATIO INCREASED [None]
  - PYREXIA [None]
